FAERS Safety Report 11130150 (Version 2)
Quarter: 2016Q4

REPORT INFORMATION
  Report Type: Report from Study
  Country: US (occurrence: US)
  Receive Date: 20150521
  Receipt Date: 20161011
  Transmission Date: 20170206
  Serious: Yes (Hospitalization)
  Sender: FDA-Public Use
  Company Number: US-SA-2013SA113813

PATIENT
  Age: 48 Year
  Sex: Male

DRUGS (4)
  1. AMPYRA [Concomitant]
     Active Substance: DALFAMPRIDINE
  2. AUBAGIO [Suspect]
     Active Substance: TERIFLUNOMIDE
     Indication: MULTIPLE SCLEROSIS
     Route: 048
     Dates: end: 20140803
  3. AUBAGIO [Suspect]
     Active Substance: TERIFLUNOMIDE
     Indication: MULTIPLE SCLEROSIS
     Route: 048
     Dates: start: 20131003
  4. AUBAGIO [Suspect]
     Active Substance: TERIFLUNOMIDE
     Indication: MULTIPLE SCLEROSIS
     Route: 048

REACTIONS (9)
  - Pneumonia [Recovered/Resolved]
  - Condition aggravated [Unknown]
  - Bronchitis [Recovered/Resolved]
  - Alopecia [Unknown]
  - Cognitive disorder [Unknown]
  - Influenza [Recovered/Resolved]
  - Therapeutic response unexpected [Unknown]
  - Dehydration [Recovered/Resolved]
  - Diarrhoea [Unknown]
